FAERS Safety Report 23299216 (Version 5)
Quarter: 2024Q2

REPORT INFORMATION
  Report Type: Report from Study
  Country: CA (occurrence: CA)
  Receive Date: 20231215
  Receipt Date: 20240409
  Transmission Date: 20240716
  Serious: Yes (Hospitalization)
  Sender: FDA-Public Use
  Company Number: CA-JNJFOC-20231157855

PATIENT
  Age: 73 Year
  Sex: Female

DRUGS (2)
  1. REMICADE [Suspect]
     Active Substance: INFLIXIMAB
     Indication: Rheumatoid arthritis
     Route: 041
     Dates: start: 20231011, end: 20231011
  2. REMICADE [Suspect]
     Active Substance: INFLIXIMAB
     Route: 041

REACTIONS (6)
  - Urosepsis [Recovered/Resolved]
  - Infection [Unknown]
  - Blood pressure increased [Unknown]
  - Hospitalisation [Unknown]
  - Lower limb fracture [Recovering/Resolving]
  - Cheilitis [Unknown]

NARRATIVE: CASE EVENT DATE: 20240101
